FAERS Safety Report 5397857-7 (Version None)
Quarter: 2007Q3

REPORT INFORMATION
  Report Type: 
  Country: None (occurrence: None)
  Receive Date: 20070726
  Receipt Date: 20070719
  Transmission Date: 20080115
  Serious: Yes (Other)
  Sender: FDA-Public Use
  Company Number: A0664254A

PATIENT
  Age: 29 Year
  Sex: Female

DRUGS (4)
  1. ALLI [Suspect]
     Route: 048
     Dates: start: 20070621, end: 20070706
  2. TOPAMAX [Concomitant]
  3. PROPRANOLOL [Concomitant]
  4. ALLERGY MEDICATION [Concomitant]

REACTIONS (8)
  - ABDOMINAL DISTENSION [None]
  - ABDOMINAL PAIN UPPER [None]
  - BALANCE DISORDER [None]
  - CONSTIPATION [None]
  - DIZZINESS [None]
  - HYPOAESTHESIA [None]
  - SYNCOPE [None]
  - VOMITING [None]
